FAERS Safety Report 19561784 (Version 3)
Quarter: 2022Q1

REPORT INFORMATION
  Report Type: Spontaneous
  Country: RU (occurrence: RU)
  Receive Date: 20210714
  Receipt Date: 20220302
  Transmission Date: 20220423
  Serious: Yes (Hospitalization, Disabling, Other)
  Sender: FDA-Public Use
  Company Number: RU-JNJFOC-20210711201

PATIENT
  Age: 42 Year
  Sex: Male
  Weight: 88 kg

DRUGS (23)
  1. SIRTURO [Suspect]
     Active Substance: BEDAQUILINE FUMARATE
     Indication: Tuberculosis
     Dosage: 400 UNITS NOT REPORTED
     Route: 048
     Dates: start: 20210519, end: 20210529
  2. SIRTURO [Suspect]
     Active Substance: BEDAQUILINE FUMARATE
     Dosage: 400 UNITS NOT REPORTED
     Route: 048
     Dates: start: 20210531, end: 20210612
  3. SIRTURO [Suspect]
     Active Substance: BEDAQUILINE FUMARATE
     Dosage: 400 UNITS NOT REPORTED
     Route: 048
     Dates: start: 20210622, end: 20210624
  4. SIRTURO [Suspect]
     Active Substance: BEDAQUILINE FUMARATE
     Dosage: 400 UNITS NOT REPORTED
     Route: 048
     Dates: start: 20210624, end: 20210713
  5. LEVOFLOXACIN [Suspect]
     Active Substance: LEVOFLOXACIN
     Indication: Tuberculosis
     Dosage: 1000 UNITS NOT REPORTED
     Route: 048
     Dates: start: 20210519, end: 20210529
  6. LEVOFLOXACIN [Suspect]
     Active Substance: LEVOFLOXACIN
     Dosage: 250 UNITS NOT REPORTED
     Route: 065
     Dates: start: 20210622
  7. LEVOFLOXACIN [Suspect]
     Active Substance: LEVOFLOXACIN
     Dosage: 500 UNITS NOT REPORTED
     Route: 065
     Dates: start: 20210623, end: 20210625
  8. LINEZOLID [Suspect]
     Active Substance: LINEZOLID
     Indication: Tuberculosis
     Dosage: 600 UNITS NOT REPORTED
     Route: 048
     Dates: start: 20210519, end: 20210529
  9. LINEZOLID [Suspect]
     Active Substance: LINEZOLID
     Dosage: 600 UNITS NOT REPORTED
     Route: 065
     Dates: start: 20210531, end: 20210612
  10. LINEZOLID [Suspect]
     Active Substance: LINEZOLID
     Dosage: 600 UNITS NOT REPORTED
     Route: 065
     Dates: start: 20210622, end: 20210624
  11. LINEZOLID [Suspect]
     Active Substance: LINEZOLID
     Dosage: 600 UNITS NOT REPORTED
     Route: 065
     Dates: start: 20210624, end: 20210713
  12. CLOFAZIMINE [Suspect]
     Active Substance: CLOFAZIMINE
     Indication: Tuberculosis
     Dosage: 100 UNITS NOT REPORTED
     Route: 048
     Dates: start: 20210519, end: 20210529
  13. CLOFAZIMINE [Suspect]
     Active Substance: CLOFAZIMINE
     Dosage: 100 UNITS NOT REPORTED
     Route: 065
     Dates: start: 20210531, end: 20210612
  14. CLOFAZIMINE [Suspect]
     Active Substance: CLOFAZIMINE
     Dosage: 100 UNITS NOT REPORTED
     Route: 065
     Dates: start: 20210622, end: 20210624
  15. CLOFAZIMINE [Suspect]
     Active Substance: CLOFAZIMINE
     Dosage: 100 UNITS NOT REPORTED
     Route: 065
     Dates: start: 20210624, end: 20210713
  16. DELAMANID [Suspect]
     Active Substance: DELAMANID
     Indication: Tuberculosis
     Dosage: 200
     Route: 048
     Dates: start: 20210714
  17. SODIUM CHLORIDE [Concomitant]
     Active Substance: SODIUM CHLORIDE
     Indication: Product used for unknown indication
     Dosage: NACL 0.9% -200.0
     Route: 065
     Dates: start: 20210628, end: 20210707
  18. ASCORBIC ACID [Concomitant]
     Active Substance: ASCORBIC ACID
     Indication: Product used for unknown indication
     Route: 065
     Dates: start: 20210625, end: 20210627
  19. VITAMIN B6 [Concomitant]
     Active Substance: PYRIDOXINE HYDROCHLORIDE
     Indication: Prophylaxis
     Dosage: 100 MG QOD
     Route: 048
     Dates: start: 20210621
  20. HEPTOR [Concomitant]
     Indication: Prophylaxis
     Dosage: 400 MR, 2 TABS
     Route: 048
     Dates: start: 20210624, end: 20210627
  21. HEPTOR [Concomitant]
     Dosage: 1 VIAL
     Route: 042
     Dates: start: 20210628, end: 20210707
  22. HEPTOR [Concomitant]
     Dosage: 1 VIAL
     Route: 042
     Dates: start: 20210708, end: 20210717
  23. HEPTRAL [ADEMETIONINE] [Concomitant]
     Indication: Prophylaxis
     Dosage: 400 MR
     Route: 042
     Dates: start: 20210628, end: 20210702

REACTIONS (6)
  - Arthralgia [Recovered/Resolved]
  - Alanine aminotransferase increased [Recovering/Resolving]
  - Aspartate aminotransferase increased [Recovering/Resolving]
  - Blood uric acid increased [Unknown]
  - Alcohol abuse [Unknown]
  - Treatment noncompliance [Unknown]

NARRATIVE: CASE EVENT DATE: 20210529
